FAERS Safety Report 17426182 (Version 5)
Quarter: 2020Q3

REPORT INFORMATION
  Report Type: Report from Study
  Country: US (occurrence: US)
  Receive Date: 20200217
  Receipt Date: 20200710
  Transmission Date: 20201102
  Serious: Yes (Death, Hospitalization, Other)
  Sender: FDA-Public Use
  Company Number: US-BAYER-2020-020605

PATIENT
  Age: 77 Year
  Sex: Male

DRUGS (9)
  1. PANTOPRAZOLE [Concomitant]
     Active Substance: PANTOPRAZOLE
  2. TRAMADOL HYDROCHLORIDE. [Concomitant]
     Active Substance: TRAMADOL HYDROCHLORIDE
  3. DEXAMETHASONE. [Concomitant]
     Active Substance: DEXAMETHASONE
  4. DIGOXIN. [Concomitant]
     Active Substance: DIGOXIN
  5. ONDANSETRON [Concomitant]
     Active Substance: ONDANSETRON
  6. STIVARGA [Suspect]
     Active Substance: REGORAFENIB
     Indication: FATIGUE
     Dosage: 160 MG, QD
     Route: 048
     Dates: start: 20200124
  7. DILTIAZEM HCL [Concomitant]
     Active Substance: DILTIAZEM HYDROCHLORIDE
  8. STIVARGA [Suspect]
     Active Substance: REGORAFENIB
     Indication: FATIGUE
     Dosage: 80 MG, QD
     Route: 048
  9. COLCRYS [Concomitant]
     Active Substance: COLCHICINE

REACTIONS (10)
  - Asthenia [Not Recovered/Not Resolved]
  - Decreased appetite [Not Recovered/Not Resolved]
  - Fatigue [Not Recovered/Not Resolved]
  - Disease progression [Fatal]
  - Abdominal distension [Recovering/Resolving]
  - White blood cell count increased [Not Recovered/Not Resolved]
  - Off label use [None]
  - Malaise [Not Recovered/Not Resolved]
  - Confusional state [Not Recovered/Not Resolved]
  - Product use in unapproved indication [None]

NARRATIVE: CASE EVENT DATE: 2020
